FAERS Safety Report 5095880-3 (Version None)
Quarter: 2006Q3

REPORT INFORMATION
  Report Type: 
  Country: None (occurrence: None)
  Receive Date: 20060727
  Receipt Date: 20060501
  Transmission Date: 20061208
  Serious: No
  Sender: FDA-Public Use
  Company Number: FACT0600237

PATIENT
  Sex: Male

DRUGS (2)
  1. FACTIVE [Suspect]
     Indication: RESPIRATORY TRACT INFECTION BACTERIAL
     Dates: start: 20060401, end: 20060101
  2. EFFEXOR [Suspect]

REACTIONS (2)
  - ANXIETY [None]
  - DRUG INTERACTION [None]
